FAERS Safety Report 8558587-3 (Version None)
Quarter: 2012Q3

REPORT INFORMATION
  Report Type: 
  Country: None (occurrence: None)
  Receive Date: 20120801
  Receipt Date: 20120724
  Transmission Date: 20120928
  Serious: Yes (Hospitalization, Other)
  Sender: FDA-Public Use
  Company Number: US-ABBOTT-12P-163-0959679-00

PATIENT
  Sex: Male
  Weight: 87.168 kg

DRUGS (5)
  1. UNKNOWN MEDICATION [Concomitant]
     Indication: BLOOD CHOLESTEROL INCREASED
  2. UNKNOWN MEDICATIONS [Concomitant]
     Indication: HYPERSENSITIVITY
  3. HUMIRA [Suspect]
     Indication: RHEUMATOID ARTHRITIS
     Route: 058
     Dates: start: 20120421
  4. UNKNOWN MEDICATION [Concomitant]
     Indication: HYPERTENSION
  5. UNKNOWN MEDICATIONS [Concomitant]
     Indication: ASTHMA

REACTIONS (4)
  - ARTERIOSCLEROSIS [None]
  - CORONARY ARTERY OCCLUSION [None]
  - DYSPNOEA [None]
  - CHEST PAIN [None]
